FAERS Safety Report 5009215-5 (Version None)
Quarter: 2006Q2

REPORT INFORMATION
  Report Type: 
  Country: None (occurrence: None)
  Receive Date: 20060519
  Receipt Date: 20060515
  Transmission Date: 20061013
  Serious: Yes (Death, Other)
  Sender: FDA-Public Use
  Company Number: 200610042

PATIENT
  Age: 76 Year
  Sex: Male

DRUGS (5)
  1. STREPTASE [Suspect]
     Indication: MYOCARDIAL INFARCTION
     Dosage: 45 MG DAILY IV
     Route: 042
     Dates: start: 20050103, end: 20050103
  2. ASPIRIN [Suspect]
     Indication: MYOCARDIAL INFARCTION
     Dosage: 200 MG DAILY PO
     Route: 048
     Dates: start: 20050103, end: 20050103
  3. UNFRACTIONATED HEPARIN [Suspect]
     Indication: MYOCARDIAL INFARCTION
     Dates: start: 20050103, end: 20050103
  4. ACE-INHIBITOR [Concomitant]
  5. MEPERIDINE HCL [Concomitant]

REACTIONS (6)
  - ACUTE RESPIRATORY FAILURE [None]
  - APHASIA [None]
  - ASPIRATION BRONCHIAL [None]
  - GINGIVAL BLEEDING [None]
  - HAEMORRHAGE INTRACRANIAL [None]
  - HEMIPARESIS [None]
